FAERS Safety Report 20312510 (Version 8)
Quarter: 2022Q3

REPORT INFORMATION
  Report Type: Report from Study
  Country: DE (occurrence: None)
  Receive Date: 20220110
  Receipt Date: 20220808
  Transmission Date: 20221026
  Serious: Yes (Hospitalization)
  Sender: FDA-Public Use
  Company Number: DE-Eisai Medical Research-EC-2022-106323

PATIENT
  Age: 71 Year
  Sex: Female
  Weight: 65 kg

DRUGS (21)
  1. LENVATINIB [Suspect]
     Active Substance: LENVATINIB
     Indication: Non-small cell lung cancer metastatic
     Dosage: STARTING DOSE AT 20 MG FLUCTUADED DOSAGE
     Route: 048
     Dates: start: 20210708, end: 20211210
  2. LENVATINIB [Suspect]
     Active Substance: LENVATINIB
     Route: 048
     Dates: start: 20211211, end: 20211227
  3. PEMBROLIZUMAB [Suspect]
     Active Substance: PEMBROLIZUMAB
     Indication: Non-small cell lung cancer metastatic
     Route: 041
     Dates: start: 20210708, end: 20211118
  4. PEMBROLIZUMAB [Suspect]
     Active Substance: PEMBROLIZUMAB
     Route: 041
     Dates: start: 20211210, end: 20211210
  5. PEMBROLIZUMAB [Suspect]
     Active Substance: PEMBROLIZUMAB
     Route: 041
     Dates: start: 20220128, end: 20220128
  6. LOPERAMIDE [Concomitant]
     Active Substance: LOPERAMIDE
     Dates: start: 20210926
  7. SPIOLTO (OLODATEROL HYDROCHLORIDE, TIOTROPIUM BROMIDE MONOHYDRATE [Concomitant]
     Dates: start: 202008
  8. ALBUTEROL [Concomitant]
     Active Substance: ALBUTEROL
     Dates: start: 202009
  9. CODICOMPREN [Concomitant]
     Dates: start: 20210622
  10. PANTOPRAZOLE [Concomitant]
     Active Substance: PANTOPRAZOLE
     Dates: start: 20210705
  11. POLYETHYLENE GLYCOL 3350\POTASSIUM CHLORIDE\SODIUM BICARBONATE\SODIUM [Concomitant]
     Active Substance: POLYETHYLENE GLYCOL 3350\POTASSIUM CHLORIDE\SODIUM BICARBONATE\SODIUM CHLORIDE
     Route: 048
     Dates: start: 20210707
  12. IBUPROFEN [Concomitant]
     Active Substance: IBUPROFEN
     Dates: start: 20210716
  13. METHOCARBAMOL [Concomitant]
     Active Substance: METHOCARBAMOL
     Dates: start: 20210728
  14. CHLORTHALIDONE [Concomitant]
     Active Substance: CHLORTHALIDONE
     Dates: start: 20210728
  15. IRBESARTAN [Concomitant]
     Active Substance: IRBESARTAN
     Dates: start: 20210728
  16. BISOPROLOL [Concomitant]
     Active Substance: BISOPROLOL
     Dates: start: 20210819
  17. POTASSIUM [Concomitant]
     Active Substance: POTASSIUM
     Dates: start: 20210820
  18. ASPIRIN [Concomitant]
     Active Substance: ASPIRIN
     Dates: start: 20211007
  19. LEVOTHYROXINE SODIUM [Concomitant]
     Active Substance: LEVOTHYROXINE SODIUM
     Dates: start: 20211118
  20. ELASOMERAN [Concomitant]
     Active Substance: ELASOMERAN
     Route: 030
     Dates: start: 20211209, end: 20211209
  21. SODIUM CHLORIDE [Concomitant]
     Active Substance: SODIUM CHLORIDE
     Dates: start: 20211208

REACTIONS (2)
  - Stomatitis [Recovered/Resolved]
  - Pneumonia [Not Recovered/Not Resolved]

NARRATIVE: CASE EVENT DATE: 20211222
